FAERS Safety Report 7541937-4 (Version None)
Quarter: 2011Q2

REPORT INFORMATION
  Report Type: 
  Country: None (occurrence: None)
  Receive Date: 20110524
  Receipt Date: 20110324
  Transmission Date: 20111010
  Serious: No
  Sender: FDA-Public Use
  Company Number: 030001

PATIENT
  Sex: Female
  Weight: 87.5 kg

DRUGS (8)
  1. CIMZIA [Suspect]
     Indication: CROHN'S DISEASE
     Dosage: (SUBCUTANEOUS)
     Route: 058
     Dates: start: 20110318, end: 20110324
  2. PENTASA [Concomitant]
  3. TEMAZEPAM [Concomitant]
  4. ZANTAC /00550802/ [Concomitant]
  5. LISINOPRIL [Concomitant]
  6. IMURAN [Concomitant]
  7. ATENOLOL [Concomitant]
  8. KLONOPIN [Concomitant]

REACTIONS (2)
  - MUSCLE TIGHTNESS [None]
  - PRURITUS [None]
